FAERS Safety Report 16024020 (Version 5)
Quarter: 2020Q2

REPORT INFORMATION
  Report Type: Report from Study
  Country: CO (occurrence: CO)
  Receive Date: 20190301
  Receipt Date: 20200530
  Transmission Date: 20200713
  Serious: Yes (Other)
  Sender: FDA-Public Use
  Company Number: PHHY2019CO025058

PATIENT
  Sex: Female
  Weight: 74 kg

DRUGS (3)
  1. AFINITOR [Suspect]
     Active Substance: EVEROLIMUS
     Dosage: 10 MG, QD
     Route: 048
     Dates: start: 20181102
  2. AFINITOR [Suspect]
     Active Substance: EVEROLIMUS
     Dosage: 5 MG
     Route: 065
  3. AFINITOR [Suspect]
     Active Substance: EVEROLIMUS
     Indication: BREAST CANCER
     Dosage: 10 MG, QD
     Route: 048
     Dates: start: 20181002

REACTIONS (23)
  - Psychiatric symptom [Unknown]
  - Inflammation [Unknown]
  - Pain [Unknown]
  - Coagulopathy [Unknown]
  - Breast cancer [Unknown]
  - Malignant neoplasm progression [Unknown]
  - Headache [Unknown]
  - Pyrexia [Unknown]
  - Thrombosis [Unknown]
  - Discomfort [Unknown]
  - Chills [Unknown]
  - Fatigue [Unknown]
  - Depressed mood [Unknown]
  - Eating disorder [Unknown]
  - Peripheral swelling [Unknown]
  - Chest pain [Unknown]
  - Asthenia [Unknown]
  - Fall [Unknown]
  - Dry mouth [Unknown]
  - Asphyxia [Unknown]
  - Syncope [Unknown]
  - Diarrhoea [Unknown]
  - Pain in extremity [Unknown]
